FAERS Safety Report 7906940-0 (Version None)
Quarter: 2011Q4

REPORT INFORMATION
  Report Type: 
  Country: None (occurrence: None)
  Receive Date: 20111109
  Receipt Date: 20111109
  Transmission Date: 20120403
  Serious: No
  Sender: FDA-Public Use
  Company Number: None

PATIENT
  Sex: Female
  Weight: 104.3273 kg

DRUGS (3)
  1. TRAZODONE HCL [Suspect]
     Indication: OBSESSIVE-COMPULSIVE DISORDER
     Dosage: 100MG 1 TIME A DAY MOUTH
     Route: 048
     Dates: start: 20110923, end: 20111007
  2. TRAZODONE HCL [Suspect]
     Indication: DEPRESSION
     Dosage: 100MG 1 TIME A DAY MOUTH
     Route: 048
     Dates: start: 20110923, end: 20111007
  3. TRAZODONE HCL [Suspect]
     Indication: INSOMNIA
     Dosage: 100MG 1 TIME A DAY MOUTH
     Route: 048
     Dates: start: 20110923, end: 20111007

REACTIONS (7)
  - VOMITING [None]
  - DYSGEUSIA [None]
  - ABDOMINAL PAIN [None]
  - CHOKING [None]
  - MUSCLE SPASMS [None]
  - PAROSMIA [None]
  - PAIN [None]
